FAERS Safety Report 9067234 (Version 1)
Quarter: 2013Q1

REPORT INFORMATION
  Report Type: Spontaneous
  Country: RU (occurrence: RU)
  Receive Date: 20130214
  Receipt Date: 20130214
  Transmission Date: 20140127
  Serious: Yes (Death)
  Sender: FDA-Public Use
  Company Number: RU-TEVA-384536ISR

PATIENT
  Age: 30 Year
  Sex: Male
  Weight: 72 kg

DRUGS (1)
  1. COPAXONE [Suspect]
     Route: 058

REACTIONS (1)
  - Pancreatic carcinoma [Fatal]
